FAERS Safety Report 7929660-5 (Version None)
Quarter: 2011Q4

REPORT INFORMATION
  Report Type: 
  Country: None (occurrence: None)
  Receive Date: 20111121
  Receipt Date: 20111118
  Transmission Date: 20120403
  Serious: Yes (Other)
  Sender: FDA-Public Use
  Company Number: US-PFIZER INC-2009247215

PATIENT
  Sex: Male

DRUGS (7)
  1. ACETYLSALICYLIC ACID [Concomitant]
     Indication: CORONARY ARTERY DISEASE
     Dosage: UNK
     Dates: start: 20050801, end: 20070801
  2. METOPROLOL [Concomitant]
     Indication: HYPERTENSION
     Dosage: UNK
     Dates: start: 20050801
  3. LISINOPRIL AND HYDROCHLOROTHIAZIDE [Concomitant]
     Indication: HYPERTENSION
     Dosage: UNK
     Dates: start: 20050801
  4. VYTORIN [Concomitant]
     Indication: HYPERCHOLESTEROLAEMIA
     Dosage: UNK
     Dates: start: 20050901, end: 20070801
  5. PLAVIX [Concomitant]
     Indication: CORONARY ARTERY DISEASE
     Dosage: UNK
     Dates: start: 20050801, end: 20070801
  6. CHANTIX [Suspect]
     Indication: SMOKING CESSATION THERAPY
     Dosage: ONE MONTH STARTER PACK FOLLOWED BY TWO MONTHS OF THE CONTINUING PACK
     Route: 048
     Dates: start: 20061227, end: 20070201
  7. PLAVIX [Concomitant]
     Indication: PROPHYLAXIS

REACTIONS (24)
  - ATTENTION DEFICIT/HYPERACTIVITY DISORDER [None]
  - JUDGEMENT IMPAIRED [None]
  - DELUSION [None]
  - ANGER [None]
  - SUICIDAL IDEATION [None]
  - PARANOIA [None]
  - HALLUCINATION, VISUAL [None]
  - OBSESSIVE-COMPULSIVE DISORDER [None]
  - AGORAPHOBIA [None]
  - AMNESIA [None]
  - ANXIETY DISORDER [None]
  - SELF INJURIOUS BEHAVIOUR [None]
  - PSYCHOTIC DISORDER [None]
  - PERSONALITY DISORDER [None]
  - PANIC ATTACK [None]
  - AGGRESSION [None]
  - HOMICIDAL IDEATION [None]
  - MENTAL DISORDER [None]
  - HYPERSOMNIA [None]
  - INSOMNIA [None]
  - MOOD SWINGS [None]
  - HALLUCINATION, AUDITORY [None]
  - MAJOR DEPRESSION [None]
  - PSYCHOMOTOR RETARDATION [None]
